FAERS Safety Report 23820711 (Version 1)
Quarter: 2024Q2

REPORT INFORMATION
  Report Type: Report from Study
  Country: US (occurrence: US)
  Receive Date: 20240506
  Receipt Date: 20240506
  Transmission Date: 20240716
  Serious: Yes (Hospitalization)
  Sender: FDA-Public Use
  Company Number: US-BAYER-2024A064928

PATIENT

DRUGS (1)
  1. ALKA-SELTZER HANGOVER RELIEF [Suspect]
     Active Substance: ASPIRIN\CAFFEINE
     Route: 048

REACTIONS (7)
  - Blood caffeine increased [None]
  - Vomiting [Unknown]
  - Hyperhidrosis [Unknown]
  - Palpitations [Unknown]
  - Dyspnoea [Unknown]
  - Dry mouth [Unknown]
  - Feeling abnormal [None]
